FAERS Safety Report 5141050-X (Version None)
Quarter: 2006Q4

REPORT INFORMATION
  Report Type: 
  Country: None (occurrence: None)
  Receive Date: 20061026
  Receipt Date: 20060904
  Transmission Date: 20070319
  Serious: Yes (Other)
  Sender: FDA-Public Use
  Company Number: CHNY2006BR02851

PATIENT
  Age: 26 Day
  Sex: Male
  Weight: 4.8 kg

DRUGS (2)
  1. AGASTEN (NCH) (CLEMASTINE HYDROGEN FUMARATE) SYRUP [Suspect]
     Indication: HYPERSENSITIVITY
     Dosage: 2.5 ML, ONCE/SINGLE, ORAL
     Route: 048
     Dates: start: 20060904, end: 20060904
  2. REDOXON (ASCORBIC ACID) [Concomitant]

REACTIONS (4)
  - ABDOMINAL PAIN UPPER [None]
  - DYSPNOEA [None]
  - SOMNOLENCE [None]
  - SYNCOPE [None]
